FAERS Safety Report 26050818 (Version 1)
Quarter: 2025Q4

REPORT INFORMATION
  Report Type: Report from Study
  Country: EU (occurrence: EU)
  Receive Date: 20251116
  Receipt Date: 20251116
  Transmission Date: 20260118
  Serious: Yes (Hospitalization)
  Sender: ABBVIE
  Company Number: EU-ABBVIE-6548875

PATIENT
  Age: 76 Year
  Sex: Male

DRUGS (3)
  1. FOSCARBIDOPA\FOSLEVODOPA [Suspect]
     Active Substance: FOSCARBIDOPA\FOSLEVODOPA
     Indication: Parkinson^s disease
     Dosage: SMALL DOSE: 0.43 ML, BASE DOSE: 0.48 ML/H, LARGE DOSE: 0.49 ML.
     Route: 058
     Dates: start: 20250225, end: 20251106
  2. Noacid [Concomitant]
     Indication: Prophylaxis
     Route: 048
  3. CARBIDOPA\ENTACAPONE\LEVODOPA [Concomitant]
     Active Substance: CARBIDOPA\ENTACAPONE\LEVODOPA
     Indication: Parkinson^s disease
     Dosage: 150 MG LEVODOPA, 37.5 MG CARBIDOPA, 200 MG ENTACAPONE  / TABLET
     Route: 048

REACTIONS (5)
  - Confusional state [Unknown]
  - Urinary tract infection [Recovering/Resolving]
  - Disorientation [Recovering/Resolving]
  - Renal impairment [Unknown]
  - Dehydration [Recovered/Resolved]

NARRATIVE: CASE EVENT DATE: 20251101
